FAERS Safety Report 16745171 (Version 9)
Quarter: 2019Q4

REPORT INFORMATION
  Report Type: Spontaneous
  Country: US (occurrence: US)
  Receive Date: 20190827
  Receipt Date: 20191219
  Transmission Date: 20200122
  Serious: No
  Sender: FDA-Public Use
  Company Number: US-PFIZER INC-2019358732

PATIENT
  Age: 61 Year
  Sex: Male
  Weight: 65.76 kg

DRUGS (5)
  1. CAVERJECT [Suspect]
     Active Substance: ALPROSTADIL
     Dosage: 10 UG, WEEKLY
  2. CAVERJECT [Suspect]
     Active Substance: ALPROSTADIL
     Dosage: 7.5 UG, WEEKLY
  3. CAVERJECT [Suspect]
     Active Substance: ALPROSTADIL
     Dosage: 10 UG, 1X/DAY
     Dates: start: 20190510, end: 20190516
  4. CAVERJECT [Suspect]
     Active Substance: ALPROSTADIL
     Indication: ERECTILE DYSFUNCTION
     Dosage: 5 UG, WEEKLY
     Dates: start: 201904
  5. CAVERJECT [Suspect]
     Active Substance: ALPROSTADIL
     Dosage: 10 UG, DAILY
     Dates: start: 20190420, end: 20190423

REACTIONS (4)
  - Depressed mood [Not Recovered/Not Resolved]
  - Product quality issue [Unknown]
  - Off label use [Unknown]
  - Drug ineffective [Not Recovered/Not Resolved]

NARRATIVE: CASE EVENT DATE: 201905
